FAERS Safety Report 8711559 (Version 2)
Quarter: 2013Q3

REPORT INFORMATION
  Report Type: Spontaneous
  Country: US (occurrence: US)
  Receive Date: 20120807
  Receipt Date: 20130909
  Transmission Date: 20140515
  Serious: Yes (Hospitalization)
  Sender: FDA-Public Use
  Company Number: US-GENZYME-FABR-1002671

PATIENT
  Age: 59 Year
  Sex: Male
  Weight: 84.3 kg

DRUGS (1)
  1. FABRAZYME [Suspect]
     Indication: FABRY^S DISEASE
     Dosage: 0.83 MG/KG, Q2W
     Route: 042
     Dates: start: 200404

REACTIONS (4)
  - Orthopnoea [Unknown]
  - Atrial fibrillation [Unknown]
  - Asthenia [Unknown]
  - Dyspnoea [Unknown]
